FAERS Safety Report 12758950 (Version 2)
Quarter: 2016Q4

REPORT INFORMATION
  Report Type: Report from Study
  Country: BR (occurrence: BR)
  Receive Date: 20160919
  Receipt Date: 20161005
  Transmission Date: 20170207
  Serious: Yes (Death, Hospitalization, Other)
  Sender: FDA-Public Use
  Company Number: PHHY2016BR127519

PATIENT
  Sex: Female

DRUGS (2)
  1. EXELON PATCH [Suspect]
     Active Substance: RIVASTIGMINE
     Indication: TREMOR
     Dosage: 4.6 MG, QD PATCH 5 (CM2)
     Route: 062
  2. EXELON PATCH [Suspect]
     Active Substance: RIVASTIGMINE
     Indication: MEMORY IMPAIRMENT
     Dosage: 9.5 MG, QD PATCH 10 (CM2)
     Route: 062

REACTIONS (12)
  - Death [Fatal]
  - Delirium [Unknown]
  - Hallucination, visual [Unknown]
  - Malaise [Unknown]
  - Delusion [Unknown]
  - Product use issue [Unknown]
  - Aortic valve incompetence [Unknown]
  - Blood pressure increased [Unknown]
  - Speech disorder [Unknown]
  - Incoherent [Unknown]
  - Swelling [Unknown]
  - Transient ischaemic attack [Unknown]
